FAERS Safety Report 13337800 (Version 1)
Quarter: 2017Q1

REPORT INFORMATION
  Report Type: Spontaneous
  Country: GB (occurrence: GB)
  Receive Date: 20170315
  Receipt Date: 20170315
  Transmission Date: 20170428
  Serious: Yes (Life-Threatening, Hospitalization, Other)
  Sender: FDA-Public Use
  Company Number: GB-TEVA-749087ACC

PATIENT
  Age: 83 Year
  Sex: Female
  Weight: 49.4 kg

DRUGS (10)
  1. FERROUS FUMARATE [Concomitant]
     Active Substance: FERROUS FUMARATE
  2. DONEPEZIL. [Suspect]
     Active Substance: DONEPEZIL
     Indication: DEMENTIA
     Route: 048
     Dates: start: 20161024, end: 20170125
  3. ATORVASTATIN [Suspect]
     Active Substance: ATORVASTATIN
     Indication: DEMENTIA
     Route: 048
     Dates: start: 20160909, end: 20170125
  4. BISOPROLOL [Concomitant]
     Active Substance: BISOPROLOL
  5. CROTAMITON [Concomitant]
     Active Substance: CROTAMITON
  6. CALCIUM AND VITAMIN D3 [Concomitant]
     Active Substance: CALCIUM\CHOLECALCIFEROL
  7. AZELASTINE [Concomitant]
     Active Substance: AZELASTINE
  8. COCODAMOL [Concomitant]
     Active Substance: ACETAMINOPHEN\CODEINE PHOSPHATE
  9. ASPIRIN. [Concomitant]
     Active Substance: ASPIRIN
  10. OMEPRAZOLE. [Concomitant]
     Active Substance: OMEPRAZOLE

REACTIONS (3)
  - Rash pruritic [Recovering/Resolving]
  - Hepatic function abnormal [Recovering/Resolving]
  - Hepatomegaly [Recovering/Resolving]

NARRATIVE: CASE EVENT DATE: 20170110
